FAERS Safety Report 5254534-0 (Version None)
Quarter: 2007Q1

REPORT INFORMATION
  Report Type: 
  Country: None (occurrence: None)
  Receive Date: 20070302
  Receipt Date: 20070301
  Transmission Date: 20070707
  Serious: Yes (Other)
  Sender: FDA-Public Use
  Company Number: AU-BRISTOL-MYERS SQUIBB COMPANY-13696539

PATIENT
  Age: 81 Year
  Sex: Female

DRUGS (6)
  1. IRBESARTAN [Suspect]
  2. HYDRENE [Suspect]
  3. LASIX [Suspect]
  4. PARIET [Suspect]
     Indication: GASTRITIS
     Route: 048
     Dates: start: 20050808
  5. PARIET [Suspect]
     Indication: DUODENITIS
     Route: 048
     Dates: start: 20050808
  6. ALDOMET [Concomitant]

REACTIONS (2)
  - NEPHRITIS INTERSTITIAL [None]
  - RENAL FAILURE [None]
